FAERS Safety Report 12964642 (Version 1)
Quarter: 2016Q4

REPORT INFORMATION
  Report Type: Spontaneous
  Country: US (occurrence: US)
  Receive Date: 20161122
  Receipt Date: 20161122
  Transmission Date: 20170207
  Serious: No
  Sender: FDA-Public Use
  Company Number: US-GE HEALTHCARE MEDICAL DIAGNOSTICS-TCGN-PR-1606S-0001

PATIENT
  Age: 76 Year
  Sex: Female

DRUGS (2)
  1. TECHNETIUM TC-99M GENERATOR [Suspect]
     Active Substance: TECHNETIUM TC-99M
     Indication: DIAGNOSTIC PROCEDURE
  2. TECHNETIUM TC-99M GENERATOR [Suspect]
     Active Substance: TECHNETIUM TC-99M
     Indication: JOINT ARTHROPLASTY
     Dosage: DOSE NOT REPORTED
     Route: 042
     Dates: start: 20160627, end: 20160627

REACTIONS (1)
  - Vertigo [Recovered/Resolved]

NARRATIVE: CASE EVENT DATE: 20160627
